FAERS Safety Report 5750253-2 (Version None)
Quarter: 2008Q2

REPORT INFORMATION
  Report Type: 
  Country: None (occurrence: None)
  Receive Date: 20080527
  Receipt Date: 20080519
  Transmission Date: 20081010
  Serious: Yes (Other)
  Sender: FDA-Public Use
  Company Number: US-PFIZER INC-2008043259

PATIENT
  Sex: Male
  Weight: 71.818 kg

DRUGS (2)
  1. VIAGRA [Suspect]
     Indication: ERECTILE DYSFUNCTION
     Dates: start: 19980101, end: 20080401
  2. MOBIC [Concomitant]

REACTIONS (1)
  - ABNORMAL SENSATION IN EYE [None]
